FAERS Safety Report 16747537 (Version 1)
Quarter: 2019Q3

REPORT INFORMATION
  Report Type: Spontaneous
  Country: JP (occurrence: JP)
  Receive Date: 20190827
  Receipt Date: 20190827
  Transmission Date: 20191005
  Serious: Yes (Death, Other)
  Sender: FDA-Public Use
  Company Number: JP-BRISTOL-MYERS SQUIBB COMPANY-BMS-2019-083183

PATIENT
  Age: 56 Year
  Sex: Male
  Weight: 41.6 kg

DRUGS (1)
  1. OPDIVO [Suspect]
     Active Substance: NIVOLUMAB
     Indication: GASTRIC CANCER
     Dosage: 240 MG
     Route: 041
     Dates: start: 20190307, end: 20190530

REACTIONS (8)
  - Blood creatine phosphokinase increased [Unknown]
  - Myocarditis [Fatal]
  - Myositis [Fatal]
  - Asthenia [Unknown]
  - Myasthenia gravis [Fatal]
  - Delirium [Unknown]
  - Restlessness [Unknown]
  - Eyelid ptosis [Unknown]

NARRATIVE: CASE EVENT DATE: 20190629
